FAERS Safety Report 6662581-7 (Version None)
Quarter: 2010Q1

REPORT INFORMATION
  Report Type: 
  Country: None (occurrence: None)
  Receive Date: 20100329
  Receipt Date: 20100316
  Transmission Date: 20100710
  Serious: Yes (Hospitalization)
  Sender: FDA-Public Use
  Company Number: 230009M06DEU

PATIENT
  Age: 39 Year
  Weight: 65 kg

DRUGS (1)
  1. REBIF [Suspect]
     Indication: RELAPSING-REMITTING MULTIPLE SCLEROSIS
     Dosage: 22, 3 IN 1 WEEKS, SUBCUTANEOUS
     Route: 058
     Dates: start: 20050509

REACTIONS (5)
  - ATRIAL FIBRILLATION [None]
  - BASEDOW'S DISEASE [None]
  - CARDIAC FAILURE [None]
  - CARDIOMYOPATHY [None]
  - THYROTOXIC CRISIS [None]
